FAERS Safety Report 9193811 (Version 2)
Quarter: 2013Q2

REPORT INFORMATION
  Report Type: Spontaneous
  Country: US (occurrence: US)
  Receive Date: 20130327
  Receipt Date: 20130404
  Transmission Date: 20140414
  Serious: Yes (Hospitalization, Other)
  Sender: FDA-Public Use
  Company Number: US-PFIZER INC-2012158621

PATIENT
  Age: 52 Year
  Sex: Female
  Weight: 62.59 kg

DRUGS (6)
  1. EFFEXOR XR [Suspect]
     Indication: MAJOR DEPRESSION
     Dosage: UNK, 1X/DAY
     Route: 048
     Dates: start: 2007
  2. EFFEXOR XR [Suspect]
     Dosage: 300 MG, 1X/DAY
     Route: 048
     Dates: end: 201002
  3. EFFEXOR XR [Suspect]
     Dosage: 300 MG (TWO CAPSULES OF 150MG), 1X/DAY
     Route: 048
     Dates: start: 201003
  4. SYNTHROID [Concomitant]
     Indication: HYPOTHYROIDISM
     Dosage: 0.75 UG, UNK
  5. LOPRESSOR [Concomitant]
     Indication: HYPERTENSION
     Dosage: UNK, 2X/DAY
  6. KLONOPIN [Concomitant]
     Indication: PANIC ATTACK
     Dosage: UNK

REACTIONS (3)
  - Suicide attempt [Unknown]
  - Memory impairment [Unknown]
  - Blood cholesterol increased [Unknown]
